FAERS Safety Report 13413737 (Version 4)
Quarter: 2021Q1

REPORT INFORMATION
  Report Type: Spontaneous
  Country: US (occurrence: US)
  Receive Date: 20170406
  Receipt Date: 20210312
  Transmission Date: 20210419
  Serious: No
  Sender: FDA-Public Use
  Company Number: US-JNJFOC-20170313981

PATIENT
  Age: 12 Year
  Sex: Male

DRUGS (4)
  1. RISPERDAL [Suspect]
     Active Substance: RISPERIDONE
     Indication: AUTISM SPECTRUM DISORDER
     Route: 048
     Dates: start: 20071002, end: 20080624
  2. RISPERIDONE. [Suspect]
     Active Substance: RISPERIDONE
     Indication: PRODUCT USED FOR UNKNOWN INDICATION
     Dosage: VARYING DOSES OF 0.25 MG AND 0.5 MG
     Route: 048
     Dates: start: 20080730, end: 20131021
  3. RISPERIDONE. [Suspect]
     Active Substance: RISPERIDONE
     Indication: AUTISM SPECTRUM DISORDER
     Dosage: IN VARYING DOSE OF 0.25 MG AND 5 MG
     Route: 048
     Dates: start: 20080730, end: 20131021
  4. RISPERDAL [Suspect]
     Active Substance: RISPERIDONE
     Dosage: 0.25 MG AND UNSPECIFIED DOSE
     Route: 048
     Dates: start: 20140218, end: 20141117

REACTIONS (2)
  - Gynaecomastia [Unknown]
  - Emotional distress [Unknown]

NARRATIVE: CASE EVENT DATE: 201706
